FAERS Safety Report 6496084-X (Version None)
Quarter: 2009Q4

REPORT INFORMATION
  Report Type: 
  Country: None (occurrence: None)
  Receive Date: 20091214
  Receipt Date: 20090924
  Transmission Date: 20100525
  Serious: No
  Sender: FDA-Public Use
  Company Number: US-BRISTOL-MYERS SQUIBB COMPANY-14792865

PATIENT
  Age: 4 Decade
  Sex: Female

DRUGS (3)
  1. ABILIFY [Suspect]
  2. LEXAPRO [Concomitant]
  3. RISPERDAL [Concomitant]

REACTIONS (1)
  - DYSKINESIA [None]
